FAERS Safety Report 20079981 (Version 1)
Quarter: 2021Q4

REPORT INFORMATION
  Report Type: Spontaneous
  Country: IL (occurrence: IL)
  Receive Date: 20211117
  Receipt Date: 20211117
  Transmission Date: 20220304
  Serious: Yes (Hospitalization, Other)
  Sender: FDA-Public Use
  Company Number: IL-ALVOGEN-2021-ALVOGEN-117758

PATIENT
  Age: 29 Year
  Sex: Male

DRUGS (1)
  1. FLECAINIDE [Suspect]
     Active Substance: FLECAINIDE
     Indication: Long QT syndrome
     Dates: start: 201911, end: 201912

REACTIONS (1)
  - Brugada syndrome [Recovered/Resolved]
